FAERS Safety Report 4659067-8 (Version None)
Quarter: 2005Q2

REPORT INFORMATION
  Report Type: 
  Country: None (occurrence: None)
  Receive Date: 20050509
  Receipt Date: 20050422
  Transmission Date: 20051028
  Serious: Yes (Death)
  Sender: FDA-Public Use
  Company Number: 2005AP02081

PATIENT
  Age: 79 Year
  Sex: Male
  Weight: 48.8 kg

DRUGS (12)
  1. IRESSA [Suspect]
     Indication: LUNG ADENOCARCINOMA
     Dosage: 250 MG DAILY PO
     Route: 048
     Dates: start: 20050112, end: 20050201
  2. TAKEPRON [Concomitant]
  3. CONIEL [Concomitant]
  4. LIORESAL [Concomitant]
  5. MEXITIL [Concomitant]
  6. SOLETON [Concomitant]
  7. UBRETID [Concomitant]
  8. BLADDERON [Concomitant]
  9. DORNER [Concomitant]
  10. GASTROM [Concomitant]
  11. TRYPTANOL /AUS/ [Concomitant]
  12. RADIATION THERAPY [Concomitant]

REACTIONS (9)
  - BLOOD LACTATE DEHYDROGENASE INCREASED [None]
  - C-REACTIVE PROTEIN INCREASED [None]
  - COMPUTERISED TOMOGRAM ABNORMAL [None]
  - COUGH [None]
  - DYSPNOEA [None]
  - LUNG CREPITATION [None]
  - LUNG DISORDER [None]
  - PO2 DECREASED [None]
  - RESPIRATORY FAILURE [None]
